FAERS Safety Report 8917793 (Version 4)
Quarter: 2013Q2

REPORT INFORMATION
  Report Type: Report from Study
  Country: SE (occurrence: SE)
  Receive Date: 20121120
  Receipt Date: 20130430
  Transmission Date: 20140414
  Serious: Yes (Hospitalization, Other)
  Sender: FDA-Public Use
  Company Number: SE-PFIZER INC-2012230339

PATIENT
  Age: 52 Year
  Sex: Male
  Weight: 115 kg

DRUGS (4)
  1. TOFACITINIB CITRATE [Suspect]
     Indication: PSORIASIS
     Dosage: 5 MG, 2X/DAY
     Route: 048
     Dates: start: 20120830, end: 20120917
  2. METFORMIN [Concomitant]
     Indication: DIABETES MELLITUS
     Dosage: UNK
     Dates: start: 201005
  3. PYRIDOXIN [Concomitant]
     Indication: PROPHYLAXIS
     Dosage: UNK
     Dates: start: 20120604
  4. TIBINIDE [Concomitant]
     Indication: LATENT TUBERCULOSIS
     Dosage: UNK
     Dates: start: 20120604

REACTIONS (1)
  - Extradural abscess [Recovered/Resolved]
